FAERS Safety Report 9524385 (Version 1)
Quarter: 2013Q1

REPORT INFORMATION
  Report Type: Spontaneous
  Country: US (occurrence: None)
  Receive Date: 20130313
  Receipt Date: 20130313
  Transmission Date: 20140127
  Serious: No
  Sender: FDA-Public Use
  Company Number: 1000030311

PATIENT
  Age: 49 Year
  Sex: Female

DRUGS (2)
  1. SAVELLA (MILNACIPRAN HYDROCHLORIDE) (12.5 MILLIGRAM, TABLETS) [Suspect]
     Dosage: 12.5 MG (12.5 MG, 1 IN 1 D)
     Route: 048
     Dates: start: 20120503
  2. ACIPHEX (RABEPRAZOLE SODIUM) (RABEPRAZOLE SODIUM) [Concomitant]

REACTIONS (1)
  - Palpitations [None]
